FAERS Safety Report 11038818 (Version 5)
Quarter: 2016Q4

REPORT INFORMATION
  Report Type: Spontaneous
  Country: US (occurrence: US)
  Receive Date: 20150416
  Receipt Date: 20161111
  Transmission Date: 20170206
  Serious: Yes (Hospitalization, Other)
  Sender: FDA-Public Use
  Company Number: US-009507513-1504USA009861

PATIENT
  Sex: Male
  Weight: 113.38 kg

DRUGS (4)
  1. FINASTERIDE. [Suspect]
     Active Substance: FINASTERIDE
     Indication: ALOPECIA
     Dosage: 1 MG, QD
     Route: 048
     Dates: start: 2008, end: 2009
  2. PROPECIA [Suspect]
     Active Substance: FINASTERIDE
     Indication: ALOPECIA
     Dosage: 1 MG, QD
     Route: 048
     Dates: start: 200605, end: 2008
  3. CELEXA [Concomitant]
     Active Substance: CITALOPRAM HYDROBROMIDE
     Indication: DEPRESSION
     Dosage: UNK UNK, UNKNOWN
     Route: 065
     Dates: start: 1990, end: 2014
  4. RISPERIDONE. [Suspect]
     Active Substance: RISPERIDONE
     Indication: DEPRESSION
     Dosage: 4 MG, UNKNOWN
     Route: 065
     Dates: start: 1990

REACTIONS (22)
  - Suicidal ideation [Unknown]
  - Ejaculation disorder [Unknown]
  - Sleep apnoea syndrome [Unknown]
  - Surgery [Unknown]
  - Testicular atrophy [Unknown]
  - Panic attack [Unknown]
  - Renal cyst [Unknown]
  - Painful ejaculation [Unknown]
  - Back pain [Unknown]
  - Penis injury [Not Recovered/Not Resolved]
  - Depression [Unknown]
  - Clostridium difficile colitis [Unknown]
  - Primary hypogonadism [Not Recovered/Not Resolved]
  - Penile size reduced [Unknown]
  - Schizoaffective disorder bipolar type [Unknown]
  - Anxiety [Unknown]
  - Sexual dysfunction [Not Recovered/Not Resolved]
  - Brain injury [Not Recovered/Not Resolved]
  - Loss of libido [Recovering/Resolving]
  - Spinal column stenosis [Unknown]
  - Hormone level abnormal [Not Recovered/Not Resolved]
  - Erectile dysfunction [Not Recovered/Not Resolved]

NARRATIVE: CASE EVENT DATE: 200712
